FAERS Safety Report 12589716 (Version 2)
Quarter: 2016Q4

REPORT INFORMATION
  Report Type: Spontaneous
  Country: JP (occurrence: JP)
  Receive Date: 20160725
  Receipt Date: 20161020
  Transmission Date: 20170207
  Serious: Yes (Hospitalization)
  Sender: FDA-Public Use
  Company Number: JP-OTSUKA-2016_012178

PATIENT
  Age: 79 Year
  Sex: Female
  Weight: 66.9 kg

DRUGS (17)
  1. CONIEL [Concomitant]
     Active Substance: BENIDIPINE HYDROCHLORIDE
     Indication: PRODUCT USED FOR UNKNOWN INDICATION
     Dosage: 8 MG, DAILY DOSE, DIVIDED 2 DOSES, AFTER BREAKFAST AND DINNER
     Route: 048
     Dates: start: 20150602
  2. PARIET [Concomitant]
     Active Substance: RABEPRAZOLE SODIUM
     Indication: PRODUCT USED FOR UNKNOWN INDICATION
     Dosage: 10 MG, QD, AFTER BREAKFAST
     Route: 048
     Dates: start: 20150602
  3. PYDOXAL [Concomitant]
     Active Substance: PYRIDOXAL
     Indication: PRODUCT USED FOR UNKNOWN INDICATION
     Dosage: 30 MG, DAILY DOSE, DIVIDED 3 DOSES, AFTER BREAKFAST, LUNCH AND DINNER
     Route: 048
     Dates: start: 20150615
  4. PREDNISOLONE. [Concomitant]
     Active Substance: PREDNISOLONE
     Indication: PRODUCT USED FOR UNKNOWN INDICATION
     Dosage: 30 MG, QD, AFTER BREAKFAST
     Route: 048
     Dates: start: 20150615
  5. FEBURIC [Concomitant]
     Active Substance: FEBUXOSTAT
     Indication: PRODUCT USED FOR UNKNOWN INDICATION
     Dosage: 10 MG, QD, AFTER BREAKFAST
     Route: 048
  6. ISOTONIC SODIUM CHLORIDE SOLUTION [Concomitant]
     Active Substance: SODIUM CHLORIDE
     Indication: PRODUCT USED FOR UNKNOWN INDICATION
     Dosage: 500 MG, QD
     Route: 042
     Dates: start: 20150612, end: 20150614
  7. CLOTIAZEPAM [Concomitant]
     Active Substance: CLOTIAZEPAM
     Indication: PRODUCT USED FOR UNKNOWN INDICATION
     Dosage: 5 MG, QD, HS
     Route: 048
  8. EPADEL-S [Concomitant]
     Active Substance: ICOSAPENT ETHYL
     Indication: PRODUCT USED FOR UNKNOWN INDICATION
     Dosage: 1800 MG, DAILY DOSE, DIVIDED 2 DOSES, IMMEDIATELY AFTER BREAKFAST AND DINNER
     Route: 048
     Dates: start: 20150602
  9. CARDENALIN [Concomitant]
     Active Substance: DOXAZOSIN MESYLATE
     Indication: PRODUCT USED FOR UNKNOWN INDICATION
     Dosage: 2 MG, QD, AFTER DINNER
     Route: 048
  10. FUROSEMIDE. [Concomitant]
     Active Substance: FUROSEMIDE
     Indication: PRODUCT USED FOR UNKNOWN INDICATION
     Dosage: 80 MG, DAILY DOSE, DIVIDED 2 DOSES, AFTER BREAKFAST AND LUNCH
     Route: 048
     Dates: start: 20150609
  11. SAMSCA [Suspect]
     Active Substance: TOLVAPTAN
     Indication: CARDIAC FAILURE
     Dosage: 15 MG, QD, AFTER BREAKFAST
     Route: 048
     Dates: start: 20150609, end: 20150629
  12. SAMSCA [Suspect]
     Active Substance: TOLVAPTAN
     Indication: NEPHROTIC SYNDROME
  13. CRESTOR [Concomitant]
     Active Substance: ROSUVASTATIN CALCIUM
     Indication: PRODUCT USED FOR UNKNOWN INDICATION
     Dosage: 2.5 MG, QD, AFTER DINNER
     Route: 048
     Dates: start: 20150602
  14. ATELEC [Concomitant]
     Active Substance: CILNIDIPINE
     Indication: PRODUCT USED FOR UNKNOWN INDICATION
     Dosage: 20 MG, DAILY DOSE, DIVIDED 2 DOSES, AFTER BREAKFAST AND DINNER
     Route: 048
  15. HEPARIN SODIUM. [Concomitant]
     Active Substance: HEPARIN SODIUM
     Indication: PRODUCT USED FOR UNKNOWN INDICATION
     Dosage: 5 ML, QD
     Route: 042
  16. ISONIAZID. [Concomitant]
     Active Substance: ISONIAZID
     Indication: PRODUCT USED FOR UNKNOWN INDICATION
     Dosage: 300 MG, QD, AFTER BREAKFAST
     Route: 048
     Dates: start: 20150615
  17. BONALON [Concomitant]
     Active Substance: ALENDRONATE SODIUM
     Indication: PRODUCT USED FOR UNKNOWN INDICATION
     Dosage: 35 MG, QW, AT THE TIME OF AWAKENING
     Route: 048
     Dates: start: 20150615

REACTIONS (3)
  - Nephrogenic anaemia [Unknown]
  - Drug-induced liver injury [Recovering/Resolving]
  - Blood glucose increased [Unknown]

NARRATIVE: CASE EVENT DATE: 20150629
